FAERS Safety Report 22364214 (Version 1)
Quarter: 2023Q2

REPORT INFORMATION
  Report Type: Spontaneous
  Country: US (occurrence: US)
  Receive Date: 20230525
  Receipt Date: 20230525
  Transmission Date: 20230721
  Serious: Yes (Other)
  Sender: FDA-Public Use
  Company Number: US-BRISTOL-MYERS SQUIBB COMPANY-2023-071735

PATIENT
  Age: 56 Year
  Sex: Female

DRUGS (3)
  1. REVLIMID [Suspect]
     Active Substance: LENALIDOMIDE
     Indication: Plasma cell myeloma
     Dosage: FREQ: DAILY FOR 15 DAYS ON THEN A WEEK OFF
     Route: 048
     Dates: start: 20220822, end: 20221108
  2. REVLIMID [Suspect]
     Active Substance: LENALIDOMIDE
     Route: 048
     Dates: start: 20230404, end: 20230408
  3. REVLIMID [Suspect]
     Active Substance: LENALIDOMIDE
     Dosage: TOOK ONLY 1 DOSE BEFORE STOPPING THE 10 MG THIS LAST TIME AND DOSE WAS DECREASED FROM 10MG TO 5MG.
     Route: 048
     Dates: start: 20230509

REACTIONS (5)
  - Hypertension [Unknown]
  - Rash [Unknown]
  - Pruritus [Unknown]
  - Neuropathy peripheral [Unknown]
  - Off label use [Unknown]

NARRATIVE: CASE EVENT DATE: 20220822
